FAERS Safety Report 6303161-2 (Version None)
Quarter: 2009Q3

REPORT INFORMATION
  Report Type: 
  Country: None (occurrence: None)
  Receive Date: 20090810
  Receipt Date: 20090407
  Transmission Date: 20100115
  Serious: No
  Sender: FDA-Public Use
  Company Number: A0771354A

PATIENT
  Age: 80 Year
  Sex: Male

DRUGS (5)
  1. PAXIL CR [Suspect]
     Dosage: 12.5MG PER DAY
     Route: 048
     Dates: start: 20030312
  2. PAXIL [Suspect]
     Dosage: 5MGD PER DAY
     Route: 048
     Dates: start: 20010101
  3. COZAAR [Concomitant]
  4. ASPIRIN [Concomitant]
  5. KLONOPIN [Concomitant]
     Dates: start: 19960529, end: 20090210

REACTIONS (1)
  - DYSKINESIA [None]
